FAERS Safety Report 6986622-2 (Version None)
Quarter: 2010Q3

REPORT INFORMATION
  Report Type: 
  Country: None (occurrence: None)
  Receive Date: 20100827
  Receipt Date: 20091008
  Transmission Date: 20110219
  Serious: Yes (Other)
  Sender: FDA-Public Use
  Company Number: AMAG200900026

PATIENT
  Age: 22 Year
  Sex: Male
  Weight: 44.9 kg

DRUGS (1)
  1. FERAHEME [Suspect]
     Indication: IRON DEFICIENCY ANAEMIA
     Dosage: 510 MG, SINGLE
     Dates: start: 20090909, end: 20090909

REACTIONS (2)
  - CHEST DISCOMFORT [None]
  - DYSPNOEA [None]
